FAERS Safety Report 7524017-3 (Version None)
Quarter: 2011Q2

REPORT INFORMATION
  Report Type: 
  Country: None (occurrence: None)
  Receive Date: 20110604
  Receipt Date: 20110520
  Transmission Date: 20111010
  Serious: No
  Sender: FDA-Public Use
  Company Number: IT-WATSON-2011-06831

PATIENT
  Age: 45 Year
  Sex: Female
  Weight: 65 kg

DRUGS (2)
  1. PROPOFOL [Suspect]
     Indication: ANAESTHESIA
     Dosage: 2.5 MG/KG, UNK
  2. FENTANYL [Suspect]
     Indication: ANAESTHESIA
     Dosage: 3 UG/KG, UNK

REACTIONS (3)
  - PUPILS UNEQUAL [None]
  - CONDITION AGGRAVATED [None]
  - PUPILLARY REFLEX IMPAIRED [None]
